FAERS Safety Report 6332511-6 (Version None)
Quarter: 2009Q3

REPORT INFORMATION
  Report Type: 
  Country: None (occurrence: None)
  Receive Date: 20090828
  Receipt Date: 20090122
  Transmission Date: 20100115
  Serious: No
  Sender: FDA-Public Use
  Company Number: A0764834A

PATIENT
  Sex: Female

DRUGS (10)
  1. MALARONE [Suspect]
     Route: 048
  2. ROCEPHIN [Concomitant]
     Route: 042
  3. ZITHROMAX [Concomitant]
  4. DIFLUCAN [Concomitant]
  5. LYRICA [Concomitant]
  6. NEURONTIN [Concomitant]
  7. TOPROL-XL [Concomitant]
  8. FIORINAL [Concomitant]
  9. MIDODRINE [Concomitant]
  10. LAMICTAL [Concomitant]

REACTIONS (1)
  - MENSTRUATION DELAYED [None]
